FAERS Safety Report 11772008 (Version 1)
Quarter: 2015Q4

REPORT INFORMATION
  Report Type: Spontaneous
  Country: US (occurrence: US)
  Receive Date: 20151124
  Receipt Date: 20151124
  Transmission Date: 20160304
  Serious: Yes (Death)
  Sender: FDA-Public Use
  Company Number: PHEH2015US024412

PATIENT
  Sex: Female

DRUGS (1)
  1. TYKERB [Suspect]
     Active Substance: LAPATINIB DITOSYLATE
     Indication: OVARIAN CANCER
     Dosage: 250 MG, BID
     Route: 065
     Dates: start: 20141104

REACTIONS (2)
  - Death [Fatal]
  - Off label use [Unknown]
